FAERS Safety Report 24753352 (Version 2)
Quarter: 2025Q1

REPORT INFORMATION
  Report Type: Spontaneous
  Country: IR (occurrence: IR)
  Receive Date: 20241219
  Receipt Date: 20250116
  Transmission Date: 20250409
  Serious: Yes (Death, Life-Threatening, Hospitalization)
  Sender: ACCORD
  Company Number: IR-MLMSERVICE-20241202-PI275902-00232-1

PATIENT
  Age: 17 Year
  Sex: Male

DRUGS (10)
  1. MYCOPHENOLATE MOFETIL [Suspect]
     Active Substance: MYCOPHENOLATE MOFETIL
     Indication: Takayasu^s arteritis
  2. INFLIXIMAB [Suspect]
     Active Substance: INFLIXIMAB
     Indication: Takayasu^s arteritis
  3. METHYLPREDNISOLONE [Suspect]
     Active Substance: METHYLPREDNISOLONE
     Indication: Takayasu^s arteritis
     Dosage: 500 MG/DAY FOR 4 DAYS AND THEN PULSE THERAPY WAS GIVEN
  4. PREDNISOLONE [Suspect]
     Active Substance: PREDNISOLONE
     Indication: Takayasu^s arteritis
     Dosage: ALSO RECEIVED 10 MG
     Route: 048
  5. INFLIXIMAB [Suspect]
     Active Substance: INFLIXIMAB
     Indication: Central nervous system vasculitis
  6. MYCOPHENOLATE MOFETIL [Suspect]
     Active Substance: MYCOPHENOLATE MOFETIL
     Indication: Central nervous system vasculitis
  7. METHYLPREDNISOLONE [Suspect]
     Active Substance: METHYLPREDNISOLONE
     Indication: Central nervous system vasculitis
     Dosage: 500 MG/DAY FOR 4 DAYS AND THEN PULSE THERAPY WAS GIVEN
  8. PREDNISOLONE [Suspect]
     Active Substance: PREDNISOLONE
     Indication: Central nervous system vasculitis
     Dosage: ALSO RECEIVED 10 MG
     Route: 048
  9. PREDNISOLONE [Suspect]
     Active Substance: PREDNISOLONE
     Indication: Takayasu^s arteritis
     Dosage: TAPERED
     Route: 048
  10. PREDNISOLONE [Suspect]
     Active Substance: PREDNISOLONE
     Indication: Central nervous system vasculitis
     Dosage: TAPERED
     Route: 048

REACTIONS (13)
  - COVID-19 [Fatal]
  - Mucormycosis [Fatal]
  - Nasal septum perforation [Fatal]
  - Nose deformity [Fatal]
  - Pneumonia cytomegaloviral [Unknown]
  - Pneumonia klebsiella [Unknown]
  - Bradycardia [Fatal]
  - Cardiac arrest [Fatal]
  - Immunosuppression [Fatal]
  - Swelling face [Unknown]
  - Mouth ulceration [Unknown]
  - Epistaxis [Unknown]
  - Loss of consciousness [Unknown]
